FAERS Safety Report 17606766 (Version 1)
Quarter: 2020Q1

REPORT INFORMATION
  Report Type: Report from Study
  Country: IT (occurrence: IT)
  Receive Date: 20200331
  Receipt Date: 20200331
  Transmission Date: 20200409
  Serious: Yes (Hospitalization)
  Sender: FDA-Public Use
  Company Number: IT-JNJFOC-20200335535

PATIENT
  Age: 11 Year
  Sex: Male
  Weight: 31 kg

DRUGS (1)
  1. RISPERDAL [Suspect]
     Active Substance: RISPERIDONE
     Indication: MENTAL DISORDER
     Dosage: ; IN TOTAL
     Route: 048
     Dates: start: 20200113, end: 20200113

REACTIONS (3)
  - Vertigo [Recovering/Resolving]
  - Medication error [Recovering/Resolving]
  - Presyncope [Recovering/Resolving]

NARRATIVE: CASE EVENT DATE: 20200113
